FAERS Safety Report 15777938 (Version 1)
Quarter: 2018Q4

REPORT INFORMATION
  Report Type: Report from Study
  Country: BR (occurrence: BR)
  Receive Date: 20181231
  Receipt Date: 20181231
  Transmission Date: 20190205
  Serious: Yes (Other)
  Sender: FDA-Public Use
  Company Number: PHHY2018BR197810

PATIENT
  Sex: Female
  Weight: 85 kg

DRUGS (1)
  1. DIOVAN HCT [Suspect]
     Active Substance: HYDROCHLOROTHIAZIDE\VALSARTAN
     Indication: HYPERTENSION
     Dosage: 1 DF (HYDROCHLOROTHIAZIDE 12.5 MG, VALSARTAN 160 MG), BID
     Route: 048

REACTIONS (5)
  - Drug dependence [Not Recovered/Not Resolved]
  - Inappropriate schedule of product administration [Unknown]
  - Labyrinthitis [Unknown]
  - Blood pressure increased [Recovering/Resolving]
  - Agitation [Unknown]
